FAERS Safety Report 10725320 (Version 1)
Quarter: 2015Q1

REPORT INFORMATION
  Report Type: Spontaneous
  Country: DK (occurrence: DK)
  Receive Date: 20150120
  Receipt Date: 20150120
  Transmission Date: 20150721
  Serious: Yes (Hospitalization, Disabling)
  Sender: FDA-Public Use
  Company Number: PHHY2015DK002912

PATIENT
  Age: 25 Year
  Sex: Female

DRUGS (1)
  1. DESORELLE [Suspect]
     Active Substance: DESOGESTREL\ETHINYL ESTRADIOL
     Indication: MENSTRUATION IRREGULAR
     Dosage: 150 + 30 MICROGRAM
     Route: 048
     Dates: start: 20100327, end: 20100602

REACTIONS (12)
  - Headache [Unknown]
  - Mental disorder [Unknown]
  - Strabismus [Recovered/Resolved]
  - Vomiting [Unknown]
  - Intracranial pressure increased [Recovered/Resolved]
  - Nausea [Unknown]
  - Superior sagittal sinus thrombosis [Recovered/Resolved]
  - Visual impairment [Recovered/Resolved]
  - Diplopia [Recovered/Resolved]
  - Papilloedema [Recovered/Resolved]
  - Cerebral haemorrhage [Recovered/Resolved]
  - Transverse sinus thrombosis [Recovered/Resolved]

NARRATIVE: CASE EVENT DATE: 20100521
